FAERS Safety Report 8462891-7 (Version None)
Quarter: 2012Q2

REPORT INFORMATION
  Report Type: 
  Country: None (occurrence: None)
  Receive Date: 20120625
  Receipt Date: 20120619
  Transmission Date: 20120825
  Serious: No
  Sender: FDA-Public Use
  Company Number: US-PFIZER INC-2012147780

PATIENT
  Sex: Female
  Weight: 54.422 kg

DRUGS (1)
  1. ADVIL MIGRAINE LIQUI-GELS [Suspect]
     Indication: PAIN
     Dosage: UNK
     Route: 048
     Dates: start: 20120618

REACTIONS (2)
  - ABDOMINAL PAIN UPPER [None]
  - DRUG ADMINISTERED TO PATIENT OF INAPPROPRIATE AGE [None]
